FAERS Safety Report 15961342 (Version 2)
Quarter: 2019Q1

REPORT INFORMATION
  Report Type: Spontaneous
  Country: CZ (occurrence: CZ)
  Receive Date: 20190214
  Receipt Date: 20190221
  Transmission Date: 20190417
  Serious: Yes (Death, Other)
  Sender: FDA-Public Use
  Company Number: CZ-AMGEN-CZESP2019019991

PATIENT
  Age: 77 Year
  Sex: Male

DRUGS (4)
  1. PANITUMUMAB [Suspect]
     Active Substance: PANITUMUMAB
     Indication: ADENOCARCINOMA OF COLON
  2. REGORAFENIB. [Suspect]
     Active Substance: REGORAFENIB
     Indication: COLORECTAL CANCER
     Dosage: UNK
     Route: 065
     Dates: start: 201502, end: 201507
  3. PANITUMUMAB [Suspect]
     Active Substance: PANITUMUMAB
     Indication: COLORECTAL CANCER
     Dosage: UNK
     Route: 065
     Dates: start: 201301
  4. REGORAFENIB. [Suspect]
     Active Substance: REGORAFENIB
     Indication: ADENOCARCINOMA OF COLON

REACTIONS (12)
  - Bowen^s disease [Unknown]
  - Mobility decreased [Unknown]
  - Squamous cell carcinoma of skin [Unknown]
  - Carotid artery stenosis [Unknown]
  - Metastases to lung [Unknown]
  - Off label use [Unknown]
  - Dermatitis acneiform [Unknown]
  - Adenocarcinoma of colon [Unknown]
  - Metastases to liver [Unknown]
  - Cerebrovascular accident [Unknown]
  - Death [Fatal]
  - Dyspnoea [Unknown]

NARRATIVE: CASE EVENT DATE: 2013
